FAERS Safety Report 8492010-2 (Version None)
Quarter: 2012Q3

REPORT INFORMATION
  Report Type: 
  Country: None (occurrence: None)
  Receive Date: 20120706
  Receipt Date: 20120702
  Transmission Date: 20120928
  Serious: Yes (Hospitalization)
  Sender: FDA-Public Use
  Company Number: US-BAYER-2012-046781

PATIENT
  Age: 40 Year
  Sex: Female
  Weight: 97.506 kg

DRUGS (10)
  1. ACETAMINOPHEN W/ CODEINE [Concomitant]
     Indication: PAIN
     Dosage: 1-2 TABLETS Q 4-6 H PRN
  2. MIGRIN-A [Concomitant]
     Indication: HEADACHE
     Dosage: 1-2 CAPSULES QID PRN
     Route: 048
     Dates: start: 20030911, end: 20031012
  3. ALPRAZOLAM [Concomitant]
     Dosage: 1 MG, QID PRN
     Route: 048
     Dates: start: 20031019, end: 20031114
  4. YASMIN [Suspect]
     Dosage: UNK
     Dates: start: 20030910, end: 20031202
  5. CIPRO HC [Concomitant]
     Dosage: INSTILL 3 DROPS B.I.D. (TWICE DAILY)
     Route: 031
  6. LAMICTAL [Concomitant]
     Dosage: 200 MG, UNK
     Dates: start: 20031202
  7. ACETIC ACID [Concomitant]
     Dosage: 5 GTS ( DROPS) INTO LEFT EAR CANAL TID
     Route: 031
  8. WELLBUTRIN [Concomitant]
     Dosage: 200 MG, UNK
     Dates: start: 20031202
  9. AMBIEN [Concomitant]
     Indication: SLEEP DISORDER THERAPY
     Dosage: 10 MG, HS PRN
  10. CELEXA [Concomitant]
     Dosage: 60 MG, Q.H.S.
     Dates: start: 20031202

REACTIONS (3)
  - INJURY [None]
  - PAIN [None]
  - PULMONARY EMBOLISM [None]
